FAERS Safety Report 9524502 (Version 1)
Quarter: 2013Q3

REPORT INFORMATION
  Report Type: Spontaneous
  Country: US (occurrence: US)
  Receive Date: 20130916
  Receipt Date: 20130916
  Transmission Date: 20140515
  Serious: No
  Sender: FDA-Public Use
  Company Number: US-PFIZER INC-2013263001

PATIENT
  Age: 29 Year
  Sex: Female
  Weight: 48.07 kg

DRUGS (1)
  1. ALAVERT [Suspect]
     Indication: ARTHROPOD STING
     Dosage: 10 MG, 1X/DAY
     Route: 048
     Dates: start: 20130911, end: 20130911

REACTIONS (1)
  - Hypoaesthesia oral [Unknown]
